FAERS Safety Report 12226228 (Version 1)
Quarter: 2016Q1

REPORT INFORMATION
  Report Type: Spontaneous
  Country: JP (occurrence: JP)
  Receive Date: 20160331
  Receipt Date: 20160331
  Transmission Date: 20160526
  Serious: Yes (Other)
  Sender: FDA-Public Use
  Company Number: JP-ASTELLAS-2016JP004801

PATIENT
  Age: 6 Month
  Sex: Male

DRUGS (13)
  1. ENDOXAN [Concomitant]
     Active Substance: CYCLOPHOSPHAMIDE
     Indication: HISTIOCYTOSIS HAEMATOPHAGIC
     Dosage: UNK UNK, UNKNOWN FREQ.
     Route: 065
  2. METHOTREXATE [Suspect]
     Active Substance: METHOTREXATE
     Dosage: UNK UNK, UNKNOWN FREQ.
     Route: 065
  3. CICLOSPORIN [Concomitant]
     Active Substance: CYCLOSPORINE
     Indication: HISTIOCYTOSIS HAEMATOPHAGIC
     Dosage: UNK UNK, UNKNOWN FREQ.
     Route: 065
  4. FLUDARABINE [Concomitant]
     Active Substance: FLUDARABINE PHOSPHATE
     Indication: CORD BLOOD TRANSPLANT THERAPY
     Route: 065
  5. ONCOVIN [Concomitant]
     Active Substance: VINCRISTINE SULFATE
     Indication: HISTIOCYTOSIS HAEMATOPHAGIC
     Dosage: UNK UNK, UNKNOWN FREQ.
     Route: 065
  6. PROGRAF [Suspect]
     Active Substance: TACROLIMUS\TACROLIMUS ANHYDROUS
     Indication: PROPHYLAXIS AGAINST GRAFT VERSUS HOST DISEASE
     Dosage: UNK UNK, UNKNOWN FREQ.
     Route: 065
  7. PROGRAF [Suspect]
     Active Substance: TACROLIMUS\TACROLIMUS ANHYDROUS
     Dosage: UNK UNK, UNKNOWN FREQ.
     Route: 065
  8. METHOTREXATE [Suspect]
     Active Substance: METHOTREXATE
     Indication: PROPHYLAXIS AGAINST GRAFT VERSUS HOST DISEASE
     Dosage: UNK UNK, UNKNOWN FREQ.
     Route: 065
  9. DEXAMETHASONE. [Concomitant]
     Active Substance: DEXAMETHASONE
     Indication: HISTIOCYTOSIS HAEMATOPHAGIC
     Dosage: UNK UNK, UNKNOWN FREQ.
     Route: 065
  10. PREDNISOLONE. [Concomitant]
     Active Substance: PREDNISOLONE
     Indication: HISTIOCYTOSIS HAEMATOPHAGIC
     Dosage: UNK UNK, UNKNOWN FREQ.
     Route: 065
  11. ETOPOSIDE. [Concomitant]
     Active Substance: ETOPOSIDE
     Indication: HISTIOCYTOSIS HAEMATOPHAGIC
     Dosage: UNK UNK, UNKNOWN FREQ.
     Route: 065
  12. MELPHALAN [Concomitant]
     Active Substance: MELPHALAN
     Indication: CORD BLOOD TRANSPLANT THERAPY
     Route: 065
  13. ADRIACIN [Concomitant]
     Active Substance: DOXORUBICIN HYDROCHLORIDE
     Indication: HISTIOCYTOSIS HAEMATOPHAGIC
     Dosage: UNK UNK, UNKNOWN FREQ.
     Route: 065

REACTIONS (3)
  - Renal disorder [Recovering/Resolving]
  - Cardiac failure [Recovering/Resolving]
  - Thrombotic microangiopathy [Recovering/Resolving]
